FAERS Safety Report 15905526 (Version 1)
Quarter: 2019Q1

REPORT INFORMATION
  Report Type: Spontaneous
  Country: CN (occurrence: CN)
  Receive Date: 20190204
  Receipt Date: 20190204
  Transmission Date: 20190417
  Serious: Yes (Hospitalization, Other)
  Sender: FDA-Public Use
  Company Number: PHHY2019CN024397

PATIENT
  Age: 84 Year
  Sex: Female
  Weight: 40 kg

DRUGS (3)
  1. TEGRETOL [Suspect]
     Active Substance: CARBAMAZEPINE
     Indication: TRIGEMINAL NEURALGIA
     Dosage: 100 MG, TID
     Route: 048
     Dates: start: 20181105
  2. TEGRETOL [Suspect]
     Active Substance: CARBAMAZEPINE
     Dosage: 200 MG, TID
     Route: 048
     Dates: start: 20181109, end: 20181112
  3. DIE LI [Concomitant]
     Indication: TRIGEMINAL NEURALGIA
     Dosage: 1 DF, TID
     Route: 048
     Dates: start: 20181109, end: 20181112

REACTIONS (2)
  - Limb deformity [Recovering/Resolving]
  - Fatigue [Recovering/Resolving]

NARRATIVE: CASE EVENT DATE: 20181111
